FAERS Safety Report 9407630 (Version 1)
Quarter: 2013Q3

REPORT INFORMATION
  Report Type: Spontaneous
  Country: US (occurrence: None)
  Receive Date: 20130718
  Receipt Date: 20130718
  Transmission Date: 20140515
  Serious: Yes (Other)
  Sender: FDA-Public Use
  Company Number: None

PATIENT
  Age: 70 Year
  Sex: 0
  Weight: 100 kg

DRUGS (1)
  1. PHENYLEPHRINE HCL [Suspect]
     Indication: PUPIL DILATION PROCEDURE
     Dates: start: 20130717, end: 20130717

REACTIONS (3)
  - Product quality issue [None]
  - Drug effect decreased [None]
  - Drug effect delayed [None]
